FAERS Safety Report 11938131 (Version 1)
Quarter: 2016Q1

REPORT INFORMATION
  Report Type: Other
  Country: US (occurrence: US)
  Receive Date: 20160122
  Receipt Date: 20160122
  Transmission Date: 20160526
  Serious: Yes (Hospitalization)
  Sender: FDA-Public Use
  Company Number: US-JUBILANT GENERICS LIMITED-1046755

PATIENT
  Age: 93 Year
  Sex: Female

DRUGS (1)
  1. OLANZAPINE. [Suspect]
     Active Substance: OLANZAPINE

REACTIONS (6)
  - Hypotension [Recovered/Resolved]
  - Sinus bradycardia [Recovered/Resolved]
  - Mental status changes [Recovered/Resolved]
  - Atrioventricular block second degree [Recovered/Resolved]
  - Hypothermia [Recovered/Resolved]
  - Electrocardiogram J wave [Recovered/Resolved]

NARRATIVE: CASE EVENT DATE: 20160111
